FAERS Safety Report 22373532 (Version 4)
Quarter: 2024Q1

REPORT INFORMATION
  Report Type: Report from Study
  Country: US (occurrence: US)
  Receive Date: 20230526
  Receipt Date: 20240112
  Transmission Date: 20240410
  Serious: Yes (Other)
  Sender: FDA-Public Use
  Company Number: US-MYOVANT SCIENCES GMBH-2022MYSCI0400665

PATIENT
  Age: 74 Year
  Sex: Male

DRUGS (9)
  1. ORGOVYX [Suspect]
     Active Substance: RELUGOLIX
     Indication: Prostate cancer
     Dosage: 360 MILLIGRAM, ONE TIME DOSE
     Route: 048
     Dates: start: 20220422, end: 20220422
  2. ORGOVYX [Suspect]
     Active Substance: RELUGOLIX
     Dosage: 120 MILLIGRAM, QD
     Route: 048
     Dates: start: 20220423
  3. ORGOVYX [Suspect]
     Active Substance: RELUGOLIX
     Dosage: UNK
  4. ORGOVYX [Suspect]
     Active Substance: RELUGOLIX
     Dosage: UNK
  5. ORGOVYX [Suspect]
     Active Substance: RELUGOLIX
     Dosage: UNK
  6. ORGOVYX [Suspect]
     Active Substance: RELUGOLIX
     Dosage: UNK
  7. ORGOVYX [Suspect]
     Active Substance: RELUGOLIX
     Dosage: UNK
  8. ORGOVYX [Suspect]
     Active Substance: RELUGOLIX
     Dosage: UNK
  9. ORGOVYX [Suspect]
     Active Substance: RELUGOLIX
     Dosage: UNK

REACTIONS (40)
  - Diabetes mellitus [Unknown]
  - Emotional disorder [Not Recovered/Not Resolved]
  - Malaise [Not Recovered/Not Resolved]
  - Dizziness [Not Recovered/Not Resolved]
  - Feeling cold [Unknown]
  - Peripheral coldness [Unknown]
  - Confusional state [Unknown]
  - Thirst [Unknown]
  - Peripheral swelling [Unknown]
  - Anxiety [Unknown]
  - Blood pressure increased [Unknown]
  - Gastrointestinal disorder [Unknown]
  - Heart rate increased [Unknown]
  - Nausea [Unknown]
  - Hyperhidrosis [Not Recovered/Not Resolved]
  - Hot flush [Not Recovered/Not Resolved]
  - Diarrhoea [Not Recovered/Not Resolved]
  - Depression [Not Recovered/Not Resolved]
  - Fatigue [Unknown]
  - Haemoglobin decreased [Unknown]
  - Blood glucose increased [Unknown]
  - Constipation [Unknown]
  - Muscle spasms [Not Recovered/Not Resolved]
  - Pollakiuria [Unknown]
  - Dyspnoea [Unknown]
  - Presyncope [Unknown]
  - Influenza [Unknown]
  - Injection site erythema [Unknown]
  - Injection site warmth [Unknown]
  - Injection site swelling [Unknown]
  - Sinus disorder [Unknown]
  - Carpal tunnel syndrome [Unknown]
  - Carpal tunnel decompression [Unknown]
  - Food craving [Unknown]
  - Infection [Unknown]
  - Rotator cuff syndrome [Recovering/Resolving]
  - Asthenia [Not Recovered/Not Resolved]
  - Insomnia [Unknown]
  - Adverse drug reaction [Unknown]
  - Product dose omission issue [Recovered/Resolved]

NARRATIVE: CASE EVENT DATE: 20220424
